FAERS Safety Report 6309849-1 (Version None)
Quarter: 2009Q3

REPORT INFORMATION
  Report Type: 
  Country: None (occurrence: None)
  Receive Date: 20090811
  Receipt Date: 20090606
  Transmission Date: 20100115
  Serious: No
  Sender: FDA-Public Use
  Company Number: 1000007249

PATIENT
  Age: 59 Year
  Sex: Female

DRUGS (11)
  1. SAVELLA [Suspect]
     Indication: FIBROMYALGIA
     Dosage: 12.5 MG (12.5 MG, 1 IN 1 D), ORAL 25MG (12.5 MG, 2IN 1 D) ORAL 50MG (25MG 2 IN 1D)ORAL
     Route: 048
     Dates: start: 20090615, end: 20090615
  2. SAVELLA [Suspect]
     Indication: FIBROMYALGIA
     Dosage: 12.5 MG (12.5 MG, 1 IN 1 D), ORAL 25MG (12.5 MG, 2IN 1 D) ORAL 50MG (25MG 2 IN 1D)ORAL
     Route: 048
     Dates: start: 20090616, end: 20090617
  3. SAVELLA [Suspect]
     Indication: FIBROMYALGIA
     Dosage: 12.5 MG (12.5 MG, 1 IN 1 D), ORAL 25MG (12.5 MG, 2IN 1 D) ORAL 50MG (25MG 2 IN 1D)ORAL
     Route: 048
     Dates: start: 20090618, end: 20090621
  4. SAVELLA [Suspect]
     Indication: FIBROMYALGIA
     Dosage: 100 MG (50 MG, 2 IN 1 D) , ORAL
     Route: 048
     Dates: start: 20090622, end: 20090624
  5. SAVELLA [Suspect]
     Indication: FIBROMYALGIA
     Dosage: 50 MG, 25 MG, 2 IN 1 D , ORAL
     Route: 048
     Dates: start: 20090625
  6. WELLBUTRIN [Concomitant]
  7. FUROSEMIDE [Concomitant]
  8. POTASSIUM CHLORIDE [Concomitant]
  9. METFORMIN HCL [Concomitant]
  10. UNITHROID [Concomitant]
  11. CENTRUM SILVER [Concomitant]

REACTIONS (6)
  - DIZZINESS [None]
  - DRY MOUTH [None]
  - HYPERHIDROSIS [None]
  - NAUSEA [None]
  - VERTIGO [None]
  - VOMITING [None]
